FAERS Safety Report 8438604-1 (Version None)
Quarter: 2012Q2

REPORT INFORMATION
  Report Type: 
  Country: None (occurrence: None)
  Receive Date: 20120615
  Receipt Date: 20120611
  Transmission Date: 20120825
  Serious: No
  Sender: FDA-Public Use
  Company Number: US-PFIZER INC-2012140845

PATIENT
  Age: 40 Year
  Sex: Male
  Weight: 163 kg

DRUGS (8)
  1. XANAX [Suspect]
     Indication: ANGER
  2. CELEXA [Suspect]
     Indication: ANXIETY
     Dosage: UNK
     Dates: start: 20110101, end: 20110101
  3. ZOLOFT [Suspect]
     Indication: ANXIETY
     Dosage: UNK
     Dates: start: 20110101, end: 20110101
  4. XANAX [Suspect]
     Indication: ANXIETY
     Dosage: UNK
     Dates: start: 20110101
  5. ZOLOFT [Suspect]
     Indication: ANGER
  6. NEURONTIN [Suspect]
     Indication: ANGER
  7. CELEXA [Suspect]
     Indication: ANGER
  8. NEURONTIN [Suspect]
     Indication: ANXIETY
     Dosage: UNK

REACTIONS (3)
  - WEIGHT DECREASED [None]
  - HYPERTENSION [None]
  - DRUG INEFFECTIVE [None]
